FAERS Safety Report 7957929-7 (Version None)
Quarter: 2011Q4

REPORT INFORMATION
  Report Type: 
  Country: None (occurrence: None)
  Receive Date: 20111205
  Receipt Date: 20111128
  Transmission Date: 20120403
  Serious: Yes (Hospitalization, Other)
  Sender: FDA-Public Use
  Company Number: FR-ABBOTT-11P-056-0879596-00

PATIENT
  Age: 57 Year
  Sex: Female

DRUGS (1)
  1. DEPAKENE [Suspect]
     Indication: EPILEPSY
     Route: 048
     Dates: start: 20000101

REACTIONS (4)
  - ENCEPHALOPATHY [None]
  - PNEUMONIA ASPIRATION [None]
  - HYPONATRAEMIA [None]
  - SOMNOLENCE [None]
